FAERS Safety Report 24136122 (Version 1)
Quarter: 2024Q3

REPORT INFORMATION
  Report Type: Spontaneous
  Country: FR (occurrence: FR)
  Receive Date: 20240725
  Receipt Date: 20240725
  Transmission Date: 20241017
  Serious: Yes (Hospitalization)
  Sender: PFIZER
  Company Number: None

PATIENT
  Age: 88 Year
  Sex: Female

DRUGS (4)
  1. PACLITAXEL [Suspect]
     Active Substance: PACLITAXEL
     Indication: Breast cancer
     Dosage: 80 MG/M2, CYCLIC, (CYCLE 1 : D1-D8-D15)
     Route: 042
     Dates: start: 20240515, end: 20240529
  2. PACLITAXEL [Suspect]
     Active Substance: PACLITAXEL
     Dosage: 80 MG/M2, CYCLIC (CYCLE 2 : D1-D8)
     Route: 042
     Dates: start: 20240606
  3. TRASTUZUMAB [Suspect]
     Active Substance: TRASTUZUMAB
     Indication: Breast cancer
     Dosage: 8 MG/KG, SINGLE
     Route: 042
     Dates: start: 20240515, end: 20240515
  4. TRASTUZUMAB [Suspect]
     Active Substance: TRASTUZUMAB
     Dosage: 6 MG/KG, SINGLE
     Route: 042
     Dates: start: 20240606

REACTIONS (3)
  - Gastrointestinal disorder [Not Recovered/Not Resolved]
  - Blood electrolytes decreased [Recovered/Resolved]
  - Off label use [Unknown]

NARRATIVE: CASE EVENT DATE: 20240601
